FAERS Safety Report 10892562 (Version 1)
Quarter: 2015Q1

REPORT INFORMATION
  Report Type: Spontaneous
  Country: US (occurrence: US)
  Receive Date: 20150306
  Receipt Date: 20150306
  Transmission Date: 20150721
  Serious: No
  Sender: FDA-Public Use
  Company Number: US-BAYER-2015-034283

PATIENT
  Age: 86 Year
  Sex: Female
  Weight: 62 kg

DRUGS (2)
  1. ALEVE [Suspect]
     Active Substance: NAPROXEN SODIUM
     Dosage: 4 DF, ONCE
     Route: 048
     Dates: start: 20150304, end: 20150304
  2. IRBESARTAN. [Concomitant]
     Active Substance: IRBESARTAN
     Dosage: UNK

REACTIONS (1)
  - Extra dose administered [Unknown]

NARRATIVE: CASE EVENT DATE: 20150304
